FAERS Safety Report 17766324 (Version 2)
Quarter: 2020Q2

REPORT INFORMATION
  Report Type: Report from Study
  Country: None (occurrence: US)
  Receive Date: 20200511
  Receipt Date: 20200524
  Transmission Date: 20200714
  Serious: Yes (Hospitalization, Other)
  Sender: FDA-Public Use
  Company Number: US-ABBVIE-20K-163-3396633-00

PATIENT
  Age: 45 Year
  Sex: Female

DRUGS (2)
  1. RINVOQ [Suspect]
     Active Substance: UPADACITINIB
     Indication: RHEUMATOID ARTHRITIS
     Route: 048
     Dates: start: 20200307, end: 202004
  2. RINVOQ [Suspect]
     Active Substance: UPADACITINIB
     Route: 048

REACTIONS (15)
  - Bronchitis [Recovered/Resolved]
  - Poor venous access [Recovering/Resolving]
  - Back pain [Recovering/Resolving]
  - Hypotension [Recovered/Resolved]
  - Ocular hyperaemia [Recovered/Resolved]
  - Pain in extremity [Recovering/Resolving]
  - Hyperhidrosis [Recovered/Resolved]
  - Pneumonia [Recovered/Resolved]
  - Hyperaesthesia [Recovering/Resolving]
  - Contusion [Recovered/Resolved]
  - Headache [Recovered/Resolved]
  - Peripheral swelling [Recovering/Resolving]
  - Cardiovascular disorder [Recovering/Resolving]
  - Scoliosis [Not Recovered/Not Resolved]
  - Bronchiolitis [Recovered/Resolved]

NARRATIVE: CASE EVENT DATE: 202004
